FAERS Safety Report 9393504 (Version 7)
Quarter: 2014Q2

REPORT INFORMATION
  Report Type: Spontaneous
  Country: GB (occurrence: None)
  Receive Date: 20130705
  Receipt Date: 20140609
  Transmission Date: 20141212
  Serious: Yes (Life-Threatening, Other)
  Sender: FDA-Public Use
  Company Number: 1786459

PATIENT
  Age: 41 Year
  Sex: Male

DRUGS (9)
  1. VINCRISTINE SULFATE [Suspect]
     Indication: BURKITT^S LYMPHOMA
     Dates: start: 20130610
  2. METHOTREXATE [Suspect]
     Indication: BURKITT^S LYMPHOMA
  3. LIPOSOMAL DOXORUBICIN HCL [Suspect]
     Indication: BURKITT^S LYMPHOMA
     Dosage: LIPOSOME INJECTION, UNKNOWN, INTRAVENOUS (NOT OTHERWISE SPECIFIED)
     Route: 042
     Dates: start: 20130610
  4. RITUXIMAB [Suspect]
     Indication: BURKITT^S LYMPHOMA
     Dosage: 700 MG MILLIGRAM(S), UNKNOWN, ORAL?
     Route: 048
     Dates: start: 20100618
  5. CLOZAPINE [Suspect]
     Indication: PRODUCT USED FOR UNKNOWN INDICATION
     Route: 048
     Dates: start: 20100618
  6. CYCLOPHOSPHAMIDE [Suspect]
     Indication: BURKITT^S LYMPHOMA
     Dates: start: 20130610
  7. GRANISETRON [Concomitant]
  8. SODIUM BICARBONATE [Concomitant]
  9. FILGRASTIM [Concomitant]

REACTIONS (11)
  - Agranulocytosis [None]
  - Off label use [None]
  - Leukopenia [None]
  - Burkitt^s lymphoma [None]
  - Thrombocytopenia [None]
  - Haematotoxicity [None]
  - Neutropenia [None]
  - Eosinophil count increased [None]
  - White blood cell count increased [None]
  - Neutrophil count increased [None]
  - Platelet count increased [None]
